FAERS Safety Report 5087952-4 (Version None)
Quarter: 2006Q3

REPORT INFORMATION
  Report Type: 
  Country: None (occurrence: None)
  Receive Date: 20060822
  Receipt Date: 20060822
  Transmission Date: 20061208
  Serious: Yes (Hospitalization)
  Sender: FDA-Public Use
  Company Number: None

PATIENT
  Age: 51 Year
  Sex: Male
  Weight: 99.7913 kg

DRUGS (14)
  1. CELECOXIB  200 MG [Suspect]
     Indication: ARTHRALGIA
     Dosage: ONE TAB PO DAILY
     Route: 048
     Dates: start: 20041006, end: 20060610
  2. WARFARIN SODIUM [Suspect]
     Indication: PULMONARY EMBOLISM
     Dosage: 1 TAB MON.TUES.1/2 OTHER
     Dates: start: 20031124, end: 20060610
  3. FEXOFENADINE [Concomitant]
  4. GABAPENTIN [Concomitant]
  5. HYDROCHLOROTHIAZIDE [Concomitant]
  6. NICOTINE GUM [Concomitant]
  7. NICOTINE [Concomitant]
  8. OMEPRAZOLE [Concomitant]
  9. OXYCODONE HCL [Concomitant]
  10. SIMVASTATIN [Concomitant]
  11. TEMAZEPAM [Concomitant]
  12. TERAZOSIN HCL [Concomitant]
  13. GUAIFENESIN [Concomitant]
  14. AMOXICILLIN [Concomitant]

REACTIONS (5)
  - DIARRHOEA HAEMORRHAGIC [None]
  - DIVERTICULUM [None]
  - GASTROINTESTINAL HAEMORRHAGE [None]
  - HAEMORRHOIDAL HAEMORRHAGE [None]
  - HAEMORRHOIDS [None]
